FAERS Safety Report 4292811-0 (Version None)
Quarter: 2004Q1

REPORT INFORMATION
  Report Type: 
  Country: None (occurrence: None)
  Receive Date: 20040212
  Receipt Date: 20040203
  Transmission Date: 20041129
  Serious: Yes (Death, Other)
  Sender: FDA-Public Use
  Company Number: 200410255JP

PATIENT
  Sex: Female

DRUGS (2)
  1. TAXOTERE [Suspect]
     Route: 041
     Dates: start: 20031201
  2. GEMZAR [Suspect]
     Route: 041
     Dates: start: 20031201

REACTIONS (3)
  - DRUG INEFFECTIVE [None]
  - HEPATIC FAILURE [None]
  - OEDEMA [None]
